FAERS Safety Report 24545122 (Version 1)
Quarter: 2024Q4

REPORT INFORMATION
  Report Type: Spontaneous
  Country: US (occurrence: US)
  Receive Date: 20241024
  Receipt Date: 20241024
  Transmission Date: 20250114
  Serious: No
  Sender: NOVARTIS
  Company Number: US-002147023-NVSC2024US207425

PATIENT
  Sex: Male

DRUGS (1)
  1. MEKINIST [Suspect]
     Active Substance: TRAMETINIB DIMETHYL SULFOXIDE
     Indication: Brain neoplasm malignant
     Dosage: 10 ML, QD (GASTRONOMY TUBE)
     Route: 065
     Dates: start: 202410

REACTIONS (3)
  - Pain [Unknown]
  - Fatigue [Unknown]
  - Off label use [Unknown]
